FAERS Safety Report 8924625 (Version 1)
Quarter: 2012Q4

REPORT INFORMATION
  Report Type: Spontaneous
  Country: US (occurrence: None)
  Receive Date: 20121116
  Receipt Date: 20121116
  Transmission Date: 20130627
  Serious: Yes (Death)
  Sender: FDA-Public Use
  Company Number: UTC-025339

PATIENT
  Age: 74 Year
  Sex: Male
  Weight: 75.9 kg

DRUGS (2)
  1. TYVASO [Suspect]
     Indication: PRIMARY PULMONARY HYPERTENSION
     Dosage: micrograqms (4 i n 1 D)
     Route: 055
     Dates: start: 20120808
  2. COUMADIN [Concomitant]

REACTIONS (1)
  - Death [None]
